FAERS Safety Report 6390437-6 (Version None)
Quarter: 2009Q4

REPORT INFORMATION
  Report Type: 
  Country: None (occurrence: None)
  Receive Date: 20091006
  Receipt Date: 20090925
  Transmission Date: 20100525
  Serious: Yes (Life-Threatening, Hospitalization)
  Sender: FDA-Public Use
  Company Number: CY-AVENTIS-200921137GDDC

PATIENT
  Age: 27 Year
  Sex: Female

DRUGS (2)
  1. LANTUS [Suspect]
     Route: 058
  2. APIDRA [Concomitant]
     Route: 058

REACTIONS (1)
  - COLON CANCER STAGE IV [None]
